FAERS Safety Report 8940044 (Version 3)
Quarter: 2012Q4

REPORT INFORMATION
  Report Type: 
  Country: DE (occurrence: DE)
  Receive Date: 20121203
  Receipt Date: 20121214
  Transmission Date: 20130627
  Serious: Yes (Hospitalization)
  Sender: FDA-Public Use
  Company Number: DE-JNJFOC-20121112904

PATIENT
  Age: 73 Year
  Sex: Female
  Weight: 94.98 kg

DRUGS (3)
  1. IBUPROFEN [Suspect]
     Indication: PAIN
     Route: 048
  2. IBUPROFEN [Suspect]
     Indication: VERTEBRAL FORAMINAL STENOSIS
     Route: 048
  3. TERBINAFINE HYDROCHLORIDE [Suspect]
     Indication: PRODUCT USED FOR UNKNOWN INDICATION
     Route: 048

REACTIONS (1)
  - Hepatitis cholestatic [Recovering/Resolving]
